FAERS Safety Report 22042266 (Version 1)
Quarter: 2023Q1

REPORT INFORMATION
  Report Type: Spontaneous
  Country: US (occurrence: US)
  Receive Date: 20230227
  Receipt Date: 20230227
  Transmission Date: 20230417
  Serious: No
  Sender: FDA-Public Use
  Company Number: US-STRIDES ARCOLAB LIMITED-2022SP012777

PATIENT
  Age: 4 Decade
  Sex: Female

DRUGS (2)
  1. HYDROXYZINE HYDROCHLORIDE [Suspect]
     Active Substance: HYDROXYZINE HYDROCHLORIDE
     Indication: Mechanical urticaria
     Dosage: UNK, AT BED TIME (10 TO 20MG EVERY NIGHT WITH ADDITIONAL DOSE OF 10 TO 20MG EVERY 6H IF NEEDED)
     Route: 048
  2. CLOBETASOL [Concomitant]
     Active Substance: CLOBETASOL
     Indication: Mechanical urticaria
     Dosage: UNK
     Route: 065

REACTIONS (2)
  - Somnolence [Unknown]
  - Therapeutic response unexpected [Unknown]
